FAERS Safety Report 7293839-9 (Version None)
Quarter: 2011Q1

REPORT INFORMATION
  Report Type: 
  Country: None (occurrence: None)
  Receive Date: 20110215
  Receipt Date: 20110208
  Transmission Date: 20110831
  Serious: Yes (Death)
  Sender: FDA-Public Use
  Company Number: JP-PFIZER INC-2011002095

PATIENT
  Age: 62 Year
  Sex: Female
  Weight: 53 kg

DRUGS (7)
  1. VITAMEDIN CAPSULE [Concomitant]
     Dosage: 1 CAPSULES, 3X/DAY
     Route: 048
  2. NAIXAN [Concomitant]
     Dosage: 100 MG, 3X/DAY
     Route: 048
  3. DIPHENHYDRAMINE HYDROCHLORIDE [Concomitant]
     Indication: PROPHYLAXIS
     Dosage: 50 MG, 1X/DAY
     Route: 048
     Dates: start: 20101206
  4. TAKEPRON [Concomitant]
     Dosage: 30 MG, 1X/DAY
     Route: 048
  5. TEMSIROLIMUS [Suspect]
     Indication: METASTATIC RENAL CELL CARCINOMA
     Dosage: 25 MG, WEEKLY
     Route: 042
     Dates: start: 20101206, end: 20110104
  6. FERROUS CITRATE [Concomitant]
     Dosage: 50 MG, 2X/DAY
     Route: 048
  7. CODEINE PHOSPHATE [Concomitant]
     Indication: RENAL CELL CARCINOMA
     Dosage: 20 MG, 3X/DAY
     Route: 048

REACTIONS (1)
  - CARDIO-RESPIRATORY ARREST [None]
